FAERS Safety Report 20456447 (Version 1)
Quarter: 2022Q1

REPORT INFORMATION
  Report Type: Spontaneous
  Country: GB (occurrence: GB)
  Receive Date: 20220210
  Receipt Date: 20220210
  Transmission Date: 20220423
  Serious: Yes (Other)
  Sender: FDA-Public Use
  Company Number: None

PATIENT
  Age: 26 Year
  Sex: Female
  Weight: 50 kg

DRUGS (9)
  1. NAPROXEN [Suspect]
     Active Substance: NAPROXEN
     Indication: Ill-defined disorder
     Dosage: 250 MILLIGRAM
     Dates: start: 20211222
  2. BETAMETHASONE VALERATE [Concomitant]
     Active Substance: BETAMETHASONE VALERATE
     Indication: Ill-defined disorder
     Dosage: 1 DOSAGE FORM, QD (AS DIRECTED, MODERATE POTENCY))
     Dates: start: 20210415
  3. Cetraben [Concomitant]
     Indication: Ill-defined disorder
     Dosage: UNK, (AS NEEDED)
     Dates: start: 20210415
  4. BECLOMETHASONE DIPROPIONATE [Concomitant]
     Active Substance: BECLOMETHASONE DIPROPIONATE
     Indication: Ill-defined disorder
     Dosage: 1 DOSAGE FORM, BID (1-2 PUFFS TO BE TAKEN TWICE DAILY)
     Dates: start: 20210607
  5. FEXOFENADINE [Concomitant]
     Active Substance: FEXOFENADINE HYDROCHLORIDE
     Indication: Ill-defined disorder
     Dosage: 1 DOSAGE FORM, QD
     Dates: start: 20210415
  6. Oilatum [Concomitant]
     Indication: Ill-defined disorder
     Dosage: 1 DOSAGE FORM, BIWEEKLY
     Dates: start: 20210415
  7. OMEPRAZOLE [Concomitant]
     Active Substance: OMEPRAZOLE
     Indication: Ill-defined disorder
     Dosage: 1 DOSAGE FORM, QD
     Dates: start: 20220118
  8. OPTICROM [Concomitant]
     Active Substance: CROMOLYN SODIUM
     Indication: Ill-defined disorder
     Dosage: 1 DOSAGE FORM, QID
     Dates: start: 20210831
  9. ALBUTEROL [Concomitant]
     Active Substance: ALBUTEROL
     Indication: Ill-defined disorder
     Dosage: 2 DOSAGE FORM, QID (AS NEEDED)
     Dates: start: 20210415

REACTIONS (2)
  - Chest discomfort [Recovered/Resolved]
  - Abdominal pain upper [Recovered/Resolved]

NARRATIVE: CASE EVENT DATE: 20220125
